FAERS Safety Report 21238457 (Version 2)
Quarter: 2022Q4

REPORT INFORMATION
  Report Type: Spontaneous
  Country: US (occurrence: US)
  Receive Date: 20220822
  Receipt Date: 20221010
  Transmission Date: 20230113
  Serious: Yes (Other)
  Sender: FDA-Public Use
  Company Number: US-BAYER-2022A115970

PATIENT
  Age: 33 Year
  Sex: Female
  Weight: 78 kg

DRUGS (1)
  1. MIRENA [Suspect]
     Active Substance: LEVONORGESTREL
     Indication: Contraception
     Dosage: 20?G/DAY
     Route: 015
     Dates: start: 20210205, end: 20220815

REACTIONS (2)
  - Embedded device [Recovered/Resolved]
  - Genital haemorrhage [Recovered/Resolved]

NARRATIVE: CASE EVENT DATE: 20220815
